FAERS Safety Report 8394487-X (Version None)
Quarter: 2012Q2

REPORT INFORMATION
  Report Type: 
  Country: None (occurrence: None)
  Receive Date: 20120530
  Receipt Date: 20120525
  Transmission Date: 20120825
  Serious: Yes (Death)
  Sender: FDA-Public Use
  Company Number: PHEH2012US010747

PATIENT
  Sex: Male

DRUGS (1)
  1. TOBI [Suspect]
     Indication: BRONCHIECTASIS
     Dosage: 300 MG, BID FOR 28 DAYS ON AND 28 DAYS OFF
     Dates: start: 20120319

REACTIONS (2)
  - LUNG INFECTION [None]
  - HIP FRACTURE [None]
